FAERS Safety Report 5038935-1 (Version None)
Quarter: 2006Q2

REPORT INFORMATION
  Report Type: 
  Country: None (occurrence: None)
  Receive Date: 20060626
  Receipt Date: 20060626
  Transmission Date: 20061013
  Serious: Yes (Disabling)
  Sender: FDA-Public Use
  Company Number: None

PATIENT
  Sex: Female
  Weight: 70.3075 kg

DRUGS (1)
  1. NEXIUM [Suspect]
     Indication: DUODENITIS
     Dates: start: 20021003, end: 20031215

REACTIONS (12)
  - ALOPECIA [None]
  - ANXIETY [None]
  - COELIAC DISEASE [None]
  - CONSTIPATION [None]
  - DECREASED ACTIVITY [None]
  - DIZZINESS [None]
  - DYSPEPSIA [None]
  - FOOD ALLERGY [None]
  - GASTRIC DISORDER [None]
  - GASTROOESOPHAGEAL REFLUX DISEASE [None]
  - HIATUS HERNIA [None]
  - PAIN [None]
